FAERS Safety Report 16100143 (Version 3)
Quarter: 2022Q4

REPORT INFORMATION
  Report Type: Spontaneous
  Country: CA (occurrence: CA)
  Receive Date: 20190321
  Receipt Date: 20221011
  Transmission Date: 20230113
  Serious: Yes (Other)
  Sender: FDA-Public Use
  Company Number: CA-PFIZER INC-2018465189

PATIENT
  Age: 61 Year
  Sex: Female

DRUGS (7)
  1. XELJANZ [Suspect]
     Active Substance: TOFACITINIB CITRATE
     Indication: Rheumatoid arthritis
     Dosage: 5 MG, CYCLIC (EVERY 2 DAYS)
     Route: 048
     Dates: start: 201902, end: 201902
  2. XELJANZ [Suspect]
     Active Substance: TOFACITINIB CITRATE
     Indication: Psoriasis
     Dosage: UNK
     Route: 048
     Dates: start: 20190212, end: 201902
  3. XELJANZ [Suspect]
     Active Substance: TOFACITINIB CITRATE
     Dosage: 5 MG, 1X/DAY
     Route: 048
     Dates: start: 201902
  4. XELJANZ [Suspect]
     Active Substance: TOFACITINIB CITRATE
     Dosage: UNK, ALTERNATE DAY (EVERY OTHER DAY)
     Route: 048
  5. XELJANZ [Suspect]
     Active Substance: TOFACITINIB CITRATE
     Dosage: 1 DF LATEST DOSE PER PHARMACY WAS 5MG BID -DISCONTINUED
     Route: 048
     Dates: start: 20190212, end: 202209
  6. ADVIL [Concomitant]
     Active Substance: IBUPROFEN
     Dosage: UNK, 1HR BEFORE XELJANZ DOSE
     Route: 065
     Dates: start: 201902
  7. METHOTREXATE [Concomitant]
     Active Substance: METHOTREXATE
     Dosage: UNK
     Route: 065
     Dates: start: 2019

REACTIONS (9)
  - Blindness [Not Recovered/Not Resolved]
  - Migraine [Unknown]
  - Therapeutic product effect incomplete [Unknown]
  - Off label use [Unknown]
  - Off label use [Unknown]
  - Vertigo [Unknown]
  - Pain [Unknown]
  - Mobility decreased [Unknown]
  - Gait disturbance [Unknown]

NARRATIVE: CASE EVENT DATE: 20190101
